FAERS Safety Report 9123904 (Version 1)
Quarter: 2013Q1

REPORT INFORMATION
  Report Type: Spontaneous
  Country: US (occurrence: US)
  Receive Date: 20130116
  Receipt Date: 20130116
  Transmission Date: 20140127
  Serious: Yes (Death, Other)
  Sender: FDA-Public Use
  Company Number: US-UCBSA-074750

PATIENT
  Age: 95 Year
  Sex: Male

DRUGS (6)
  1. METHYLPHENIDATE [Suspect]
     Route: 048
  2. HYOSCYAMINE [Suspect]
     Route: 048
  3. BUSPIRONE [Suspect]
     Route: 048
  4. FLUOXETINE [Suspect]
     Route: 048
  5. NEFAZODONE [Suspect]
     Route: 048
  6. ACETAMINOPHEN [Suspect]
     Route: 048

REACTIONS (2)
  - Cardio-respiratory arrest [Fatal]
  - Completed suicide [Fatal]
